FAERS Safety Report 15098590 (Version 2)
Quarter: 2018Q3

REPORT INFORMATION
  Report Type: Report from Study
  Country: CO (occurrence: CO)
  Receive Date: 20180702
  Receipt Date: 20180827
  Transmission Date: 20181010
  Serious: Yes (Other)
  Sender: FDA-Public Use
  Company Number: CO-BAYER-2018-120466

PATIENT
  Weight: 2.7 kg

DRUGS (1)
  1. BETAFERON [Suspect]
     Active Substance: INTERFERON BETA-1B
     Dosage: UNK
     Route: 064

REACTIONS (4)
  - Dyspnoea [None]
  - Foetal exposure during pregnancy [None]
  - Foetal distress syndrome [None]
  - Skin discolouration [Recovered/Resolved]
